FAERS Safety Report 15919181 (Version 1)
Quarter: 2019Q1

REPORT INFORMATION
  Report Type: Spontaneous
  Country: GB (occurrence: GB)
  Receive Date: 20190205
  Receipt Date: 20190205
  Transmission Date: 20190417
  Serious: Yes (Other)
  Sender: FDA-Public Use
  Company Number: GB-TEVA-2019-GB-1006756

PATIENT
  Age: 43 Year
  Sex: Female
  Weight: 71.2 kg

DRUGS (7)
  1. LEVETIRACETAM ACCORD [Concomitant]
     Active Substance: LEVETIRACETAM
  2. NORIDAY [Concomitant]
     Active Substance: MESTRANOL\NORETHINDRONE
  3. ATORVASTATIN [Concomitant]
     Active Substance: ATORVASTATIN
  4. MODAFINIL. [Suspect]
     Active Substance: MODAFINIL
     Indication: FATIGUE
     Dosage: 200 MILLIGRAM DAILY;
     Route: 048
     Dates: start: 20181219, end: 20181225
  5. CITALOPRAM [Concomitant]
     Active Substance: CITALOPRAM HYDROBROMIDE
  6. METFORMIN [Concomitant]
     Active Substance: METFORMIN HYDROCHLORIDE
  7. MYCOPHENOLATE MOFETIL. [Concomitant]
     Active Substance: MYCOPHENOLATE MOFETIL

REACTIONS (2)
  - Epilepsy [Recovered/Resolved]
  - Partial seizures [Recovered/Resolved]

NARRATIVE: CASE EVENT DATE: 20181221
